FAERS Safety Report 12522983 (Version 1)
Quarter: 2016Q3

REPORT INFORMATION
  Report Type: Spontaneous
  Country: US (occurrence: US)
  Receive Date: 20160701
  Receipt Date: 20160701
  Transmission Date: 20161109
  Serious: No
  Sender: FDA-Public Use
  Company Number: US-009507513-1607USA000459

PATIENT
  Age: 27 Year
  Sex: Female
  Weight: 43.54 kg

DRUGS (1)
  1. NEXPLANON [Suspect]
     Active Substance: ETONOGESTREL
     Indication: CONTRACEPTION
     Dosage: LEFT ARM, EVERY 3 YEARS
     Route: 059
     Dates: start: 20140122

REACTIONS (4)
  - Abdominal distension [Unknown]
  - Depression [Unknown]
  - Metrorrhagia [Unknown]
  - Headache [Unknown]

NARRATIVE: CASE EVENT DATE: 201602
